FAERS Safety Report 9760360 (Version 3)
Quarter: 2015Q3

REPORT INFORMATION
  Report Type: Spontaneous
  Country: US (occurrence: US)
  Receive Date: 20131216
  Receipt Date: 20150806
  Transmission Date: 20151125
  Serious: No
  Sender: FDA-Public Use
  Company Number: US-GILEAD-2010-0029347

PATIENT
  Age: 70 Year
  Sex: Female

DRUGS (11)
  1. SIMVASTATIN. [Concomitant]
     Active Substance: SIMVASTATIN
  2. METOPROLOL [Concomitant]
     Active Substance: METOPROLOL
  3. VAGIFEM [Concomitant]
     Active Substance: ESTRADIOL
  4. COUMADIN [Concomitant]
     Active Substance: WARFARIN SODIUM
  5. ASMANEX [Concomitant]
     Active Substance: MOMETASONE FUROATE
  6. FERREX [Concomitant]
  7. LETAIRIS [Suspect]
     Active Substance: AMBRISENTAN
     Indication: PULMONARY ARTERIAL HYPERTENSION
     Route: 048
     Dates: start: 20100504, end: 20100520
  8. ALBUTEROL. [Concomitant]
     Active Substance: ALBUTEROL
  9. PEPCID AC [Concomitant]
     Active Substance: FAMOTIDINE
  10. TRAZODONE [Concomitant]
     Active Substance: TRAZODONE HYDROCHLORIDE
  11. NEXIUM [Concomitant]
     Active Substance: ESOMEPRAZOLE MAGNESIUM

REACTIONS (2)
  - Sleep apnoea syndrome [Unknown]
  - Joint swelling [Unknown]
